FAERS Safety Report 9856774 (Version 1)
Quarter: 2014Q1

REPORT INFORMATION
  Report Type: Spontaneous
  Country: US (occurrence: None)
  Receive Date: 20140128
  Receipt Date: 20140128
  Transmission Date: 20141002
  Serious: Yes (Death)
  Sender: FDA-Public Use
  Company Number: 20140009

PATIENT
  Age: 41 Year
  Sex: Male

DRUGS (1)
  1. SUBSYS [Suspect]
     Indication: NEOPLASM MALIGNANT
     Route: 060

REACTIONS (1)
  - Cardiac arrest [None]
